FAERS Safety Report 26200505 (Version 1)
Quarter: 2025Q4

REPORT INFORMATION
  Report Type: Spontaneous
  Country: EU (occurrence: EU)
  Receive Date: 20251225
  Receipt Date: 20251225
  Transmission Date: 20260117
  Serious: Yes (Other)
  Sender: REGENERON
  Company Number: EU-BAYER-2025A168179

PATIENT
  Sex: Male

DRUGS (1)
  1. EYLEA HD [Suspect]
     Active Substance: AFLIBERCEPT
     Indication: Product used for unknown indication
     Dosage: UNK, 114.3 MG/ML

REACTIONS (5)
  - Keratic precipitates [Recovered/Resolved]
  - Uveitis [Recovered/Resolved]
  - Vitritis [Recovered/Resolved]
  - Visual acuity reduced [Recovered/Resolved]
  - Anterior chamber cell [Recovered/Resolved]
